FAERS Safety Report 9419004 (Version 2)
Quarter: 2013Q3

REPORT INFORMATION
  Report Type: Spontaneous
  Country: BR (occurrence: BR)
  Receive Date: 20130725
  Receipt Date: 20130816
  Transmission Date: 20140515
  Serious: Yes (Other)
  Sender: FDA-Public Use
  Company Number: PHHY2013BR077715

PATIENT
  Sex: Male
  Weight: 95 kg

DRUGS (3)
  1. RITALIN LA [Suspect]
     Indication: ATTENTION DEFICIT/HYPERACTIVITY DISORDER
     Dosage: 1 DF, QD
     Route: 048
  2. OLANZAPINE [Suspect]
     Indication: SCHIZOPHRENIA
     Dosage: 1 DF, QD
     Route: 048
  3. DEPAKOTE [Suspect]
     Indication: BIPOLAR DISORDER
     Dosage: 2 DF, QD
     Route: 048

REACTIONS (5)
  - Drug dependence [Unknown]
  - Hypertension [Not Recovered/Not Resolved]
  - Hunger [Recovered/Resolved]
  - Abnormal behaviour [Recovered/Resolved]
  - Agitation [Recovered/Resolved]
